FAERS Safety Report 9688163 (Version 1)
Quarter: 2013Q4

REPORT INFORMATION
  Report Type: Spontaneous
  Country: US (occurrence: US)
  Receive Date: 20131114
  Receipt Date: 20131114
  Transmission Date: 20140711
  Serious: Yes (Other)
  Sender: FDA-Public Use
  Company Number: US-BAYER-2013-135146

PATIENT
  Age: 65 Year
  Sex: Male
  Weight: 139.23 kg

DRUGS (1)
  1. ALEVE CAPLET [Suspect]
     Indication: SCIATICA
     Dosage: 2 DF, QD
     Route: 048
     Dates: start: 20131006, end: 20131103

REACTIONS (7)
  - Eye swelling [Recovering/Resolving]
  - Swelling face [Recovering/Resolving]
  - Rash macular [Not Recovered/Not Resolved]
  - Scratch [Recovering/Resolving]
  - Incorrect drug administration duration [None]
  - Pruritus generalised [Recovering/Resolving]
  - Skin exfoliation [Not Recovered/Not Resolved]
